FAERS Safety Report 16060644 (Version 1)
Quarter: 2019Q2

REPORT INFORMATION
  Report Type: Spontaneous
  Country: US (occurrence: US)
  Receive Date: 20190312
  Receipt Date: 20190312
  Transmission Date: 20190711
  Serious: Yes (Other)
  Sender: FDA-Public Use
  Company Number: None

PATIENT
  Age: 55 Year
  Sex: Female
  Weight: 77.4 kg

DRUGS (10)
  1. SUDAFED [Concomitant]
     Active Substance: PSEUDOEPHEDRINE HYDROCHLORIDE
  2. ESTROGEN PATCH [Concomitant]
     Active Substance: ESTRADIOL
  3. STOOL SOFTENER (DOCUSATE SODIUM) [Concomitant]
     Active Substance: DOCUSATE SODIUM
  4. FASENRA [Suspect]
     Active Substance: BENRALIZUMAB
     Indication: ASTHMA PROPHYLAXIS
     Dosage: ?          OTHER FREQUENCY:SHOTS EVERY 2 WEEK;?
     Route: 030
     Dates: start: 20181001, end: 20181127
  5. SYNTHROID [Concomitant]
     Active Substance: LEVOTHYROXINE SODIUM
  6. RITUXAN [Concomitant]
     Active Substance: RITUXIMAB
  7. VITAMINS [Concomitant]
     Active Substance: VITAMINS
  8. EUCRISA OINTMENT [Concomitant]
  9. LEXAPRO [Concomitant]
     Active Substance: ESCITALOPRAM OXALATE
  10. CLARITIN [Concomitant]
     Active Substance: LORATADINE

REACTIONS (1)
  - Asthma [None]

NARRATIVE: CASE EVENT DATE: 20181001
